FAERS Safety Report 10556041 (Version 1)
Quarter: 2014Q4

REPORT INFORMATION
  Report Type: Report from Study
  Country: US (occurrence: US)
  Receive Date: 20141030
  Receipt Date: 20141030
  Transmission Date: 20150529
  Serious: Yes (Other)
  Sender: FDA-Public Use
  Company Number: US-SA-2014SA145005

PATIENT
  Age: 62 Year
  Sex: Female

DRUGS (1)
  1. AUBAGIO [Suspect]
     Active Substance: TERIFLUNOMIDE
     Route: 065

REACTIONS (7)
  - Kidney infection [Unknown]
  - Fatigue [Unknown]
  - Nausea [Unknown]
  - Abdominal pain lower [Unknown]
  - Sleep disorder [Unknown]
  - Rash pruritic [Unknown]
  - Bedridden [Unknown]
